FAERS Safety Report 15187307 (Version 1)
Quarter: 2018Q3

REPORT INFORMATION
  Report Type: Report from Study
  Country: US (occurrence: US)
  Receive Date: 20180723
  Receipt Date: 20180723
  Transmission Date: 20181010
  Serious: Yes (Death)
  Sender: FDA-Public Use
  Company Number: US-EXELIXIS-CABO-18012507

PATIENT
  Sex: Male

DRUGS (11)
  1. FENTANYL. [Concomitant]
     Active Substance: FENTANYL
  2. ONDANSETRON [Concomitant]
     Active Substance: ONDANSETRON
  3. NITROGLYCERIN. [Concomitant]
     Active Substance: NITROGLYCERIN
  4. PERCOCET [Concomitant]
     Active Substance: ACETAMINOPHEN\OXYCODONE HYDROCHLORIDE
  5. MARINOL [Concomitant]
     Active Substance: DRONABINOL
  6. TYLENOL [Concomitant]
     Active Substance: ACETAMINOPHEN
  7. CABOMETYX [Suspect]
     Active Substance: CABOZANTINIB S-MALATE
     Indication: RENAL CANCER
     Dosage: 60 MG, QD
     Route: 048
     Dates: start: 20180104
  8. CHLORPROMAZINE. [Concomitant]
     Active Substance: CHLORPROMAZINE
  9. DOCUSATE CALCIUM. [Concomitant]
     Active Substance: DOCUSATE CALCIUM
  10. LACTULOSE. [Concomitant]
     Active Substance: LACTULOSE
  11. LYNPARZA [Concomitant]
     Active Substance: OLAPARIB

REACTIONS (1)
  - Malignant neoplasm progression [Fatal]
